FAERS Safety Report 9452932 (Version 3)
Quarter: 2013Q4

REPORT INFORMATION
  Report Type: Spontaneous
  Country: US (occurrence: US)
  Receive Date: 20130812
  Receipt Date: 20131024
  Transmission Date: 20140711
  Serious: Yes (Other)
  Sender: FDA-Public Use
  Company Number: US-JNJFOC-20130802457

PATIENT
  Age: 59 Year
  Sex: Female
  Weight: 52.16 kg

DRUGS (5)
  1. SIMPONI [Suspect]
     Indication: RHEUMATOID ARTHRITIS
     Route: 058
     Dates: start: 20130816
  2. SIMPONI [Suspect]
     Indication: RHEUMATOID ARTHRITIS
     Route: 058
     Dates: start: 201209
  3. SIMPONI [Suspect]
     Indication: RHEUMATOID ARTHRITIS
     Route: 058
     Dates: start: 201301
  4. SIMPONI [Suspect]
     Indication: RHEUMATOID ARTHRITIS
     Dosage: USED ABOUT 5 YEARS AGO
     Route: 058
     Dates: start: 2008
  5. METHOTREXATE [Suspect]
     Indication: RHEUMATOID ARTHRITIS
     Dosage: 15MG/TABLET, USING METHOTREXATE FOR ABOUT 25 YEARS
     Route: 048

REACTIONS (4)
  - Malignant melanoma [Unknown]
  - Drug dose omission [Recovered/Resolved]
  - Device malfunction [Recovered/Resolved]
  - Rheumatoid arthritis [Unknown]
